FAERS Safety Report 9251732 (Version 1)
Quarter: 2013Q2

REPORT INFORMATION
  Report Type: Spontaneous
  Country: US (occurrence: US)
  Receive Date: 20130424
  Receipt Date: 20130424
  Transmission Date: 20140414
  Serious: No
  Sender: FDA-Public Use
  Company Number: US-BAYER-2013-051277

PATIENT
  Age: 71 Year
  Sex: Female
  Weight: 68.03 kg

DRUGS (6)
  1. ALEVE CAPLET [Suspect]
     Dosage: 1 DF, QD
     Route: 048
     Dates: start: 2013
  2. VERAPAMIL [Concomitant]
  3. DIURETICS [Concomitant]
  4. BAYER ASPIRIN REGIMEN ADULT LOW STRENGTH [Concomitant]
  5. CENTRUM [Concomitant]
  6. FISH OIL [Concomitant]

REACTIONS (1)
  - Incorrect drug administration duration [None]
